FAERS Safety Report 9974755 (Version 1)
Quarter: 2014Q1

REPORT INFORMATION
  Report Type: Report from Study
  Country: US (occurrence: US)
  Receive Date: 20140306
  Receipt Date: 20140306
  Transmission Date: 20141002
  Serious: No
  Sender: FDA-Public Use
  Company Number: US-ABBVIE-13P-163-1155075-00

PATIENT
  Age: 54 Year
  Sex: Female

DRUGS (4)
  1. HUMIRA [Suspect]
     Indication: RHEUMATOID ARTHRITIS
     Dates: start: 201306
  2. PREMARIN [Concomitant]
     Indication: HORMONE REPLACEMENT THERAPY
     Dosage: 1.25 MG DAILY
  3. CELEBREX [Concomitant]
     Indication: PAIN
     Dosage: 200 MG DAILY
  4. CONZIP [Concomitant]
     Indication: PAIN
     Dosage: 100 MG DAILY

REACTIONS (1)
  - Inappropriate schedule of drug administration [Recovered/Resolved]
